FAERS Safety Report 6956572-6 (Version None)
Quarter: 2010Q3

REPORT INFORMATION
  Report Type: 
  Country: None (occurrence: None)
  Receive Date: 20100830
  Receipt Date: 20100818
  Transmission Date: 20110219
  Serious: Yes (Other)
  Sender: FDA-Public Use
  Company Number: US-PFIZER INC-2010068922

PATIENT
  Sex: Female
  Weight: 54.431 kg

DRUGS (9)
  1. LYRICA [Suspect]
     Indication: NEURALGIA
     Dosage: 75 MG, 1X/DAY
     Route: 048
     Dates: start: 20100525, end: 20100525
  2. AMARYL [Concomitant]
     Dosage: 4 MG, UNK
  3. GLUCOPHAGE [Concomitant]
     Dosage: 800 MG, UNK
  4. PROCARDIA XL [Concomitant]
     Dosage: 30 MG, UNK
  5. LIPITOR [Concomitant]
     Dosage: UNK
  6. CLARITIN [Concomitant]
     Dosage: UNK
  7. SYNTHROID [Concomitant]
     Dosage: UNK
  8. LANOXIN [Concomitant]
     Dosage: UNK
  9. SITAGLIPTIN [Concomitant]
     Dosage: UNK

REACTIONS (3)
  - DIZZINESS [None]
  - HEART RATE INCREASED [None]
  - HYPERTENSION [None]
